FAERS Safety Report 22077742 (Version 2)
Quarter: 2023Q1

REPORT INFORMATION
  Report Type: Report from Study
  Country: US (occurrence: US)
  Receive Date: 20230309
  Receipt Date: 20230327
  Transmission Date: 20230417
  Serious: Yes (Hospitalization, Other)
  Sender: FDA-Public Use
  Company Number: US-BoehringerIngelheim-2023-BI-223471

PATIENT
  Age: 80 Year
  Sex: Female

DRUGS (2)
  1. OFEV [Suspect]
     Active Substance: NINTEDANIB
     Indication: Idiopathic pulmonary fibrosis
     Route: 048
     Dates: start: 202302, end: 20230307
  2. OFEV [Suspect]
     Active Substance: NINTEDANIB
     Indication: Product used for unknown indication
     Route: 048

REACTIONS (12)
  - Electrolyte imbalance [Unknown]
  - Blood pressure increased [Unknown]
  - Intracranial aneurysm [Unknown]
  - Retching [Recovered/Resolved]
  - Blood pressure systolic increased [Recovered/Resolved]
  - Decreased appetite [Recovered/Resolved]
  - Dehydration [Recovered/Resolved]
  - Illness [Not Recovered/Not Resolved]
  - Hypertension [Recovered/Resolved]
  - Blood potassium decreased [Not Recovered/Not Resolved]
  - Heart rate increased [Recovered/Resolved]
  - Blood sodium decreased [Not Recovered/Not Resolved]

NARRATIVE: CASE EVENT DATE: 20230228
